FAERS Safety Report 12518548 (Version 2)
Quarter: 2016Q3

REPORT INFORMATION
  Report Type: Spontaneous
  Country: JP (occurrence: JP)
  Receive Date: 20160630
  Receipt Date: 20160715
  Transmission Date: 20161109
  Serious: Yes (Other)
  Sender: FDA-Public Use
  Company Number: JP-VALIDUS PHARMACEUTICALS LLC-JP-2016VAL002208

PATIENT
  Age: 43 Year
  Sex: Female

DRUGS (1)
  1. FUROSEMIDE. [Suspect]
     Active Substance: FUROSEMIDE
     Indication: PRODUCT USED FOR UNKNOWN INDICATION
     Dosage: UNK

REACTIONS (10)
  - Osteolysis [Unknown]
  - Bone erosion [Unknown]
  - Gouty arthritis [Unknown]
  - Urate nephropathy [Unknown]
  - Renal atrophy [Unknown]
  - Arthralgia [Unknown]
  - Finger deformity [Unknown]
  - Hyperuricaemia [Unknown]
  - Joint swelling [Unknown]
  - Renal impairment [Unknown]
